FAERS Safety Report 9270222 (Version 15)
Quarter: 2015Q3

REPORT INFORMATION
  Report Type: Report from Study
  Country: ES (occurrence: ES)
  Receive Date: 20130503
  Receipt Date: 20150817
  Transmission Date: 20151125
  Serious: Yes (Hospitalization, Other)
  Sender: FDA-Public Use
  Company Number: ES-ROCHE-1218810

PATIENT
  Age: 83 Year
  Sex: Female
  Weight: 52.5 kg

DRUGS (10)
  1. ANASTROZOLE. [Suspect]
     Active Substance: ANASTROZOLE
     Indication: HER-2 POSITIVE BREAST CANCER
     Dosage: LAST DOSE PRIOR TO SAE WAS ON 16/APR/2013.
     Route: 048
     Dates: start: 20121116
  2. DOXAZOSIN [Concomitant]
     Active Substance: DOXAZOSIN\DOXAZOSIN MESYLATE
     Dosage: DRUG REPORTED AS DOXAZOSINA.
     Route: 065
     Dates: start: 2007
  3. PERTUZUMAB [Suspect]
     Active Substance: PERTUZUMAB
     Indication: HER-2 POSITIVE BREAST CANCER
     Dosage: LOADING DOSE CYCLE 1 ONLY AS PER PROTOCOL.
     Route: 042
     Dates: start: 20121116
  4. FUROSEMIDA [Concomitant]
     Active Substance: FUROSEMIDE
     Route: 065
     Dates: start: 2007
  5. PRAVASTATIN [Concomitant]
     Active Substance: PRAVASTATIN\PRAVASTATIN SODIUM
     Dosage: DRUG REPORTED AS PRAVASTATINA.
     Route: 065
     Dates: start: 2008
  6. TRASTUZUMAB [Suspect]
     Active Substance: TRASTUZUMAB
     Indication: HER-2 POSITIVE BREAST CANCER
     Dosage: LOADING DOSE CYCLE 1 ONLY AS PER PROTOCOL.
     Route: 042
     Dates: start: 20121116
  7. NEBIVOLOL. [Concomitant]
     Active Substance: NEBIVOLOL
     Route: 065
     Dates: start: 2007
  8. PERTUZUMAB [Suspect]
     Active Substance: PERTUZUMAB
     Dosage: MAINTENANCE DOSE, LAST DOSE PRIOR TO SAE WAS ON 01/APR/2013.
     Route: 042
     Dates: end: 20130422
  9. TRASTUZUMAB [Suspect]
     Active Substance: TRASTUZUMAB
     Dosage: MAINTENACE DOSE, LAST DOSE PRIOR TO SAE WAS ON 01/APR/2013.
     Route: 042
     Dates: end: 20130422
  10. HEPARIN [Suspect]
     Active Substance: HEPARIN SODIUM
     Indication: ATRIAL FIBRILLATION
     Route: 065
     Dates: start: 20130422, end: 20130515

REACTIONS (2)
  - Atrial fibrillation [Recovered/Resolved]
  - Haematoma [Recovered/Resolved]

NARRATIVE: CASE EVENT DATE: 20130416
